FAERS Safety Report 23550659 (Version 7)
Quarter: 2024Q3

REPORT INFORMATION
  Report Type: Report from Study
  Country: CA (occurrence: CA)
  Receive Date: 20240221
  Receipt Date: 20240924
  Transmission Date: 20241016
  Serious: Yes (Other)
  Sender: LUNDBECK
  Company Number: CA-LUNDBECK-DKLU3073001

PATIENT

DRUGS (3)
  1. VYEPTI [Suspect]
     Active Substance: EPTINEZUMAB-JJMR
     Indication: Migraine
     Dosage: 100 MILLIGRAM
     Route: 041
     Dates: start: 20231129, end: 2024
  2. BOTOX [Concomitant]
     Active Substance: ONABOTULINUMTOXINA
     Indication: Migraine
  3. CORTISONE [Concomitant]
     Active Substance: CORTISONE
     Indication: Product used for unknown indication

REACTIONS (13)
  - Vitreous detachment [Not Recovered/Not Resolved]
  - Headache [Recovering/Resolving]
  - Pain [Recovering/Resolving]
  - Pain in extremity [Recovering/Resolving]
  - Drug ineffective [Not Recovered/Not Resolved]
  - Sinus headache [Unknown]
  - Vision blurred [Recovering/Resolving]
  - Back pain [Unknown]
  - Inappropriate schedule of product administration [Recovered/Resolved]
  - Nausea [Unknown]
  - Tinnitus [Unknown]
  - Dizziness [Unknown]
  - Ear discomfort [Unknown]

NARRATIVE: CASE EVENT DATE: 20231101
